FAERS Safety Report 24223839 (Version 1)
Quarter: 2024Q3

REPORT INFORMATION
  Report Type: Spontaneous
  Country: US (occurrence: None)
  Receive Date: 20240819
  Receipt Date: 20240819
  Transmission Date: 20241017
  Serious: Yes (unspecified)
  Sender: Public
  Company Number: None

PATIENT
  Age: 40 Year
  Sex: Female

DRUGS (1)
  1. KESIMPTA [Suspect]
     Active Substance: OFATUMUMAB
     Dosage: OTHER FREQUENCY : WEEKS 0,1,2,4, THEN EVERY MONTH ;?
     Dates: start: 20240717

REACTIONS (7)
  - Myalgia [None]
  - Electric shock sensation [None]
  - Sitting disability [None]
  - Headache [None]
  - Vomiting [None]
  - Flank pain [None]
  - Adverse drug reaction [None]

NARRATIVE: CASE EVENT DATE: 20240717
